FAERS Safety Report 25868586 (Version 2)
Quarter: 2025Q4

REPORT INFORMATION
  Report Type: Spontaneous
  Country: EU (occurrence: EU)
  Receive Date: 20251001
  Receipt Date: 20251007
  Transmission Date: 20260117
  Serious: Yes (Hospitalization)
  Sender: MYLAN
  Company Number: None

PATIENT
  Age: 82 Year
  Sex: Female

DRUGS (56)
  1. ACETAMINOPHEN [Concomitant]
     Active Substance: ACETAMINOPHEN
     Indication: Thrombosis prophylaxis
     Dosage: 1 DOSAGE FORM
  2. ACETAMINOPHEN [Concomitant]
     Active Substance: ACETAMINOPHEN
     Dosage: 1 DOSAGE FORM
     Route: 048
  3. ACETAMINOPHEN [Concomitant]
     Active Substance: ACETAMINOPHEN
     Dosage: 1 DOSAGE FORM
     Route: 048
  4. ACETAMINOPHEN [Concomitant]
     Active Substance: ACETAMINOPHEN
     Dosage: 1 DOSAGE FORM
  5. ONDANSETRON [Suspect]
     Active Substance: ONDANSETRON
     Indication: Prophylaxis of nausea and vomiting
     Dosage: 4 MILLIGRAM, PRN (AS NECESSARY)
  6. ONDANSETRON [Suspect]
     Active Substance: ONDANSETRON
     Dosage: 4 MILLIGRAM, PRN (AS NECESSARY)
     Route: 048
  7. ONDANSETRON [Suspect]
     Active Substance: ONDANSETRON
     Dosage: 4 MILLIGRAM, PRN (AS NECESSARY)
     Route: 048
  8. ONDANSETRON [Suspect]
     Active Substance: ONDANSETRON
     Dosage: 4 MILLIGRAM, PRN (AS NECESSARY)
  9. PREDNISOLONE [Suspect]
     Active Substance: PREDNISOLONE
     Indication: Diffuse large B-cell lymphoma
     Dosage: 40 MILLIGRAM, CYCLE
     Dates: start: 20250704, end: 20250815
  10. PREDNISOLONE [Suspect]
     Active Substance: PREDNISOLONE
     Dosage: 40 MILLIGRAM, CYCLE
     Route: 048
     Dates: start: 20250704, end: 20250815
  11. PREDNISOLONE [Suspect]
     Active Substance: PREDNISOLONE
     Dosage: 40 MILLIGRAM, CYCLE
     Route: 048
     Dates: start: 20250704, end: 20250815
  12. PREDNISOLONE [Suspect]
     Active Substance: PREDNISOLONE
     Dosage: 40 MILLIGRAM, CYCLE
     Dates: start: 20250704, end: 20250815
  13. DOXORUBICIN [Suspect]
     Active Substance: DOXORUBICIN
     Indication: Diffuse large B-cell lymphoma
     Dosage: 39 MILLIGRAM, Q21D
     Dates: start: 20250704, end: 20250814
  14. DOXORUBICIN [Suspect]
     Active Substance: DOXORUBICIN
     Dosage: 39 MILLIGRAM, Q21D
     Route: 042
     Dates: start: 20250704, end: 20250814
  15. DOXORUBICIN [Suspect]
     Active Substance: DOXORUBICIN
     Dosage: 39 MILLIGRAM, Q21D
     Route: 042
     Dates: start: 20250704, end: 20250814
  16. DOXORUBICIN [Suspect]
     Active Substance: DOXORUBICIN
     Dosage: 39 MILLIGRAM, Q21D
     Dates: start: 20250704, end: 20250814
  17. RITUXIMAB [Suspect]
     Active Substance: RITUXIMAB
     Indication: Diffuse large B-cell lymphoma
     Dosage: 1400 MILLIGRAM, Q21D
     Dates: start: 20250704, end: 20250814
  18. RITUXIMAB [Suspect]
     Active Substance: RITUXIMAB
     Dosage: 1400 MILLIGRAM, Q21D
     Route: 058
     Dates: start: 20250704, end: 20250814
  19. RITUXIMAB [Suspect]
     Active Substance: RITUXIMAB
     Dosage: 1400 MILLIGRAM, Q21D
     Route: 058
     Dates: start: 20250704, end: 20250814
  20. RITUXIMAB [Suspect]
     Active Substance: RITUXIMAB
     Dosage: 1400 MILLIGRAM, Q21D
     Dates: start: 20250704, end: 20250814
  21. CYCLOPHOSPHAMIDE [Suspect]
     Active Substance: CYCLOPHOSPHAMIDE
     Indication: Diffuse large B-cell lymphoma
     Dosage: 1160 MILLIGRAM, Q21D
     Dates: start: 20250704, end: 20250814
  22. CYCLOPHOSPHAMIDE [Suspect]
     Active Substance: CYCLOPHOSPHAMIDE
     Dosage: 1160 MILLIGRAM, Q21D
     Route: 042
     Dates: start: 20250704, end: 20250814
  23. CYCLOPHOSPHAMIDE [Suspect]
     Active Substance: CYCLOPHOSPHAMIDE
     Dosage: 1160 MILLIGRAM, Q21D
     Route: 042
     Dates: start: 20250704, end: 20250814
  24. CYCLOPHOSPHAMIDE [Suspect]
     Active Substance: CYCLOPHOSPHAMIDE
     Dosage: 1160 MILLIGRAM, Q21D
     Dates: start: 20250704, end: 20250814
  25. VINCRISTINE SULFATE [Suspect]
     Active Substance: VINCRISTINE SULFATE
     Indication: Diffuse large B-cell lymphoma
     Dosage: 2 MILLIGRAM, Q21D
     Dates: start: 20250704, end: 20250814
  26. VINCRISTINE SULFATE [Suspect]
     Active Substance: VINCRISTINE SULFATE
     Dosage: 2 MILLIGRAM, Q21D
     Route: 042
     Dates: start: 20250704, end: 20250814
  27. VINCRISTINE SULFATE [Suspect]
     Active Substance: VINCRISTINE SULFATE
     Dosage: 2 MILLIGRAM, Q21D
     Route: 042
     Dates: start: 20250704, end: 20250814
  28. VINCRISTINE SULFATE [Suspect]
     Active Substance: VINCRISTINE SULFATE
     Dosage: 2 MILLIGRAM, Q21D
     Dates: start: 20250704, end: 20250814
  29. EMEND [Suspect]
     Active Substance: APREPITANT
     Indication: Prophylaxis of nausea and vomiting
     Dosage: 1 DOSAGE FORM, CYCLE
     Dates: start: 20250704, end: 20250814
  30. EMEND [Suspect]
     Active Substance: APREPITANT
     Dosage: 1 DOSAGE FORM, CYCLE
     Route: 048
     Dates: start: 20250704, end: 20250814
  31. EMEND [Suspect]
     Active Substance: APREPITANT
     Dosage: 1 DOSAGE FORM, CYCLE
     Route: 048
     Dates: start: 20250704, end: 20250814
  32. EMEND [Suspect]
     Active Substance: APREPITANT
     Dosage: 1 DOSAGE FORM, CYCLE
     Dates: start: 20250704, end: 20250814
  33. VOGALENE [Suspect]
     Active Substance: METOPIMAZINE
     Indication: Prophylaxis of nausea and vomiting
     Dosage: 1 DOSAGE FORM, CYCLE
     Dates: start: 20250704, end: 20250814
  34. VOGALENE [Suspect]
     Active Substance: METOPIMAZINE
     Dosage: 1 DOSAGE FORM, CYCLE
     Route: 048
     Dates: start: 20250704, end: 20250814
  35. VOGALENE [Suspect]
     Active Substance: METOPIMAZINE
     Dosage: 1 DOSAGE FORM, CYCLE
     Route: 048
     Dates: start: 20250704, end: 20250814
  36. VOGALENE [Suspect]
     Active Substance: METOPIMAZINE
     Dosage: 1 DOSAGE FORM, CYCLE
     Dates: start: 20250704, end: 20250814
  37. BACTRIM [Suspect]
     Active Substance: SULFAMETHOXAZOLE\TRIMETHOPRIM
     Indication: Antifungal prophylaxis
     Dosage: 3 DOSAGE FORM, QW
     Dates: start: 20250704
  38. BACTRIM [Suspect]
     Active Substance: SULFAMETHOXAZOLE\TRIMETHOPRIM
     Dosage: 3 DOSAGE FORM, QW
     Route: 048
     Dates: start: 20250704
  39. BACTRIM [Suspect]
     Active Substance: SULFAMETHOXAZOLE\TRIMETHOPRIM
     Dosage: 3 DOSAGE FORM, QW
     Route: 048
     Dates: start: 20250704
  40. BACTRIM [Suspect]
     Active Substance: SULFAMETHOXAZOLE\TRIMETHOPRIM
     Dosage: 3 DOSAGE FORM, QW
     Dates: start: 20250704
  41. LEUCOVORIN CALCIUM [Suspect]
     Active Substance: LEUCOVORIN CALCIUM
     Indication: Vitamin supplementation
     Dosage: 25 MILLIGRAM, QW
     Dates: start: 20250704
  42. LEUCOVORIN CALCIUM [Suspect]
     Active Substance: LEUCOVORIN CALCIUM
     Dosage: 25 MILLIGRAM, QW
     Route: 048
     Dates: start: 20250704
  43. LEUCOVORIN CALCIUM [Suspect]
     Active Substance: LEUCOVORIN CALCIUM
     Dosage: 25 MILLIGRAM, QW
     Route: 048
     Dates: start: 20250704
  44. LEUCOVORIN CALCIUM [Suspect]
     Active Substance: LEUCOVORIN CALCIUM
     Dosage: 25 MILLIGRAM, QW
     Dates: start: 20250704
  45. ELIQUIS [Concomitant]
     Active Substance: APIXABAN
     Indication: Thrombosis prophylaxis
     Dosage: 2 DOSAGE FORM, QD
  46. ELIQUIS [Concomitant]
     Active Substance: APIXABAN
     Dosage: 2 DOSAGE FORM, QD
     Route: 048
  47. ELIQUIS [Concomitant]
     Active Substance: APIXABAN
     Dosage: 2 DOSAGE FORM, QD
     Route: 048
  48. ELIQUIS [Concomitant]
     Active Substance: APIXABAN
     Dosage: 2 DOSAGE FORM, QD
  49. ATORVASTATIN [Concomitant]
     Active Substance: ATORVASTATIN
     Indication: Dyslipidaemia
     Dosage: 10 MILLIGRAM, QD
  50. ATORVASTATIN [Concomitant]
     Active Substance: ATORVASTATIN
     Dosage: 10 MILLIGRAM, QD
     Route: 048
  51. ATORVASTATIN [Concomitant]
     Active Substance: ATORVASTATIN
     Dosage: 10 MILLIGRAM, QD
     Route: 048
  52. ATORVASTATIN [Concomitant]
     Active Substance: ATORVASTATIN
     Dosage: 10 MILLIGRAM, QD
  53. OMEPRAZOLE [Concomitant]
     Active Substance: OMEPRAZOLE
     Indication: Gastrooesophageal reflux prophylaxis
     Dosage: 20 MILLIGRAM, QD
  54. OMEPRAZOLE [Concomitant]
     Active Substance: OMEPRAZOLE
     Dosage: 20 MILLIGRAM, QD
     Route: 048
  55. OMEPRAZOLE [Concomitant]
     Active Substance: OMEPRAZOLE
     Dosage: 20 MILLIGRAM, QD
     Route: 048
  56. OMEPRAZOLE [Concomitant]
     Active Substance: OMEPRAZOLE
     Dosage: 20 MILLIGRAM, QD

REACTIONS (1)
  - Pancreatitis acute [Recovered/Resolved]

NARRATIVE: CASE EVENT DATE: 20250813
